FAERS Safety Report 19608063 (Version 1)
Quarter: 2021Q3

REPORT INFORMATION
  Report Type: Report from Study
  Country: US (occurrence: US)
  Receive Date: 20210726
  Receipt Date: 20210726
  Transmission Date: 20211014
  Serious: Yes (Hospitalization, Other)
  Sender: FDA-Public Use
  Company Number: US-BRISTOL-MYERS SQUIBB COMPANY-BMS-2021-061376

PATIENT
  Age: 76 Year
  Sex: Female
  Weight: 88 kg

DRUGS (3)
  1. NIVOLUMAB [Suspect]
     Active Substance: NIVOLUMAB
     Indication: OCULAR NEOPLASM
     Dosage: 240 MILLIGRAM, Q2WK
     Route: 042
     Dates: start: 20210406, end: 20210518
  2. IPILIMUMAB [Suspect]
     Active Substance: IPILIMUMAB
     Indication: OCULAR NEOPLASM
     Dosage: 88 MILLIGRAM, Q6WK
     Route: 042
     Dates: start: 20210406, end: 20210518
  3. PREDNISONE. [Concomitant]
     Active Substance: PREDNISONE
     Indication: PRODUCT USED FOR UNKNOWN INDICATION
     Dosage: 60 MILLIGRAM, DAILY
     Route: 065

REACTIONS (1)
  - Clostridium difficile colitis [Recovered/Resolved]

NARRATIVE: CASE EVENT DATE: 20210619
